FAERS Safety Report 9170293 (Version 1)
Quarter: 2013Q1

REPORT INFORMATION
  Report Type: Spontaneous
  Country: US (occurrence: US)
  Receive Date: 20130319
  Receipt Date: 20130319
  Transmission Date: 20140127
  Serious: Yes (Other)
  Sender: FDA-Public Use
  Company Number: US-GLENMARK GENERICS INC.-2013GMK005226

PATIENT
  Age: 47 Year
  Sex: Male

DRUGS (2)
  1. GABAPENTIN [Suspect]
     Indication: NEURALGIA
     Dosage: UNK
  2. GABAPENTIN [Suspect]
     Indication: SUPPORTIVE CARE
     Dosage: UNK

REACTIONS (9)
  - Convulsion [Recovering/Resolving]
  - Depression [Unknown]
  - Amnesia [Unknown]
  - Disorientation [Unknown]
  - Incorrect dose administered [Unknown]
  - Abnormal behaviour [Unknown]
  - Somnambulism [Unknown]
  - Memory impairment [Unknown]
  - Quality of life decreased [Unknown]
